FAERS Safety Report 6128642-6 (Version None)
Quarter: 2009Q1

REPORT INFORMATION
  Report Type: 
  Country: None (occurrence: None)
  Receive Date: 20090323
  Receipt Date: 20090311
  Transmission Date: 20090719
  Serious: Yes (Other)
  Sender: FDA-Public Use
  Company Number: DE-CELGENEUS-062-C5013-07041388

PATIENT
  Sex: Female
  Weight: 66 kg

DRUGS (4)
  1. CC-5013 [Suspect]
     Route: 048
     Dates: start: 20070330, end: 20070424
  2. CC-5013 [Suspect]
     Route: 048
     Dates: start: 20070515
  3. PREDNISONE [Concomitant]
     Dosage: 10-15 MG
     Route: 048
  4. INFLIXIMAB [Concomitant]
     Indication: DRUG USE FOR UNKNOWN INDICATION
     Route: 065

REACTIONS (1)
  - GENERALISED OEDEMA [None]
